FAERS Safety Report 7921363-6 (Version None)
Quarter: 2011Q4

REPORT INFORMATION
  Report Type: 
  Country: None (occurrence: None)
  Receive Date: 20111117
  Receipt Date: 20111031
  Transmission Date: 20120403
  Serious: Yes (Other)
  Sender: FDA-Public Use
  Company Number: DZ-ROCHE-1013530

PATIENT
  Age: 34 Year
  Sex: Female

DRUGS (2)
  1. MABTHERA [Suspect]
     Indication: LUPUS NEPHRITIS
     Route: 042
  2. POLARAMINE [Concomitant]
     Route: 048

REACTIONS (6)
  - PARAESTHESIA ORAL [None]
  - RASH GENERALISED [None]
  - PRURITUS [None]
  - VIRAL INFECTION [None]
  - OFF LABEL USE [None]
  - UNEVALUABLE EVENT [None]
